FAERS Safety Report 5466893-4 (Version None)
Quarter: 2007Q3

REPORT INFORMATION
  Report Type: 
  Country: None (occurrence: None)
  Receive Date: 20070925
  Receipt Date: 20070914
  Transmission Date: 20080115
  Serious: Yes (Hospitalization)
  Sender: FDA-Public Use
  Company Number: BE-AMGEN-UK238614

PATIENT
  Sex: Male

DRUGS (7)
  1. PANITUMUMAB [Suspect]
     Indication: COLORECTAL CANCER
     Route: 041
     Dates: start: 20070625
  2. FLUOROURACIL [Concomitant]
     Route: 042
     Dates: start: 20070625
  3. LEUCOVORIN [Concomitant]
     Route: 041
     Dates: start: 20070625
  4. OXALIPLATIN [Concomitant]
     Route: 041
     Dates: start: 20070625
  5. PRIMPERAN [Concomitant]
     Route: 048
     Dates: start: 20070625
  6. TROPISETRON [Concomitant]
     Route: 042
     Dates: start: 20070625, end: 20070626
  7. TROPISETRON [Concomitant]
     Route: 048
     Dates: start: 20070627

REACTIONS (3)
  - ANOREXIA [None]
  - ASTHENIA [None]
  - NAUSEA [None]
